FAERS Safety Report 17764036 (Version 1)
Quarter: 2020Q2

REPORT INFORMATION
  Report Type: Spontaneous
  Country: NL (occurrence: NL)
  Receive Date: 20200511
  Receipt Date: 20200511
  Transmission Date: 20200714
  Serious: Yes (Other)
  Sender: FDA-Public Use
  Company Number: NL-AUROBINDO-AUR-APL-2020-022077

PATIENT
  Age: 66 Year
  Sex: Female

DRUGS (4)
  1. DIPHANTOINE-Z 100 TABLETS 92 MG [Suspect]
     Active Substance: PHENYTOIN SODIUM
     Dosage: 200 MILLIGRAM, ONCE A DAY
     Route: 065
  2. EUTHYROX [Concomitant]
     Active Substance: LEVOTHYROXINE SODIUM
     Indication: PRODUCT USED FOR UNKNOWN INDICATION
     Dosage: UNK
     Route: 065
  3. MEBEVERINE [Concomitant]
     Active Substance: MEBEVERINE
     Indication: PRODUCT USED FOR UNKNOWN INDICATION
     Dosage: UNK
     Route: 065
  4. DIPHANTOINE-Z 100 TABLETS 92 MG [Suspect]
     Active Substance: PHENYTOIN SODIUM
     Indication: EPILEPSY
     Dosage: 125 MILLIGRAM, TWO TIMES A DAY
     Route: 065
     Dates: start: 1996

REACTIONS (1)
  - Therapeutic product effect increased [Recovering/Resolving]

NARRATIVE: CASE EVENT DATE: 20191213
